FAERS Safety Report 21641318 (Version 5)
Quarter: 2023Q1

REPORT INFORMATION
  Report Type: Report from Study
  Country: BR (occurrence: BR)
  Receive Date: 20221125
  Receipt Date: 20230204
  Transmission Date: 20230418
  Serious: Yes (Hospitalization)
  Sender: FDA-Public Use
  Company Number: BR-002147023-NVSC2022BR263156

PATIENT
  Sex: Male
  Weight: 63 kg

DRUGS (9)
  1. ENTRESTO [Suspect]
     Active Substance: SACUBITRIL\VALSARTAN
     Indication: American trypanosomiasis
     Dosage: 2 DOSAGE FORM (50 MG)
     Route: 065
  2. ENTRESTO [Suspect]
     Active Substance: SACUBITRIL\VALSARTAN
     Dosage: 1 DOSAGE FORM, BID (START DATE: 6 MONTHS AGO, STOP DATE: 15 DAYS AGO)
     Route: 048
  3. ENTRESTO [Suspect]
     Active Substance: SACUBITRIL\VALSARTAN
     Dosage: 100 MG
     Route: 065
  4. ENTRESTO [Suspect]
     Active Substance: SACUBITRIL\VALSARTAN
     Dosage: 1 DOSAGE FORM, BID (A YEAR AGO)
     Route: 048
  5. FUROSEMIDE [Concomitant]
     Active Substance: FUROSEMIDE
     Indication: Diuretic therapy
     Dosage: 2 DOSAGE FORM, BID (IF HAD SWELLING)
     Route: 048
     Dates: start: 2015
  6. SPIRONOLACTONE [Concomitant]
     Active Substance: SPIRONOLACTONE
     Indication: Diuretic therapy
     Dosage: 1 DOSAGE FORM, QD
     Route: 048
     Dates: start: 2015
  7. XARELTO [Concomitant]
     Active Substance: RIVAROXABAN
     Indication: Anticoagulant therapy
     Dosage: 1 DOSAGE FORM, QD
     Route: 048
     Dates: start: 2021
  8. METOPROLOL [Concomitant]
     Active Substance: METOPROLOL
     Indication: American trypanosomiasis
     Dosage: 1 DOSAGE FORM, QD (STARTED 2 MONTHS AGO)
     Route: 048
  9. WARFARIN SODIUM [Concomitant]
     Active Substance: WARFARIN SODIUM
     Indication: Cardiovascular disorder
     Dosage: 1 DOSAGE FORM, QD
     Route: 048
     Dates: start: 20230126

REACTIONS (6)
  - American trypanosomiasis [Unknown]
  - Abdominal pain upper [Recovering/Resolving]
  - Retching [Recovering/Resolving]
  - Renal impairment [Recovering/Resolving]
  - Product dispensing error [Unknown]
  - Product use in unapproved indication [Not Recovered/Not Resolved]
